FAERS Safety Report 21108172 (Version 1)
Quarter: 2022Q3

REPORT INFORMATION
  Report Type: Spontaneous
  Country: US (occurrence: US)
  Receive Date: 20220720
  Receipt Date: 20220720
  Transmission Date: 20221026
  Serious: No
  Sender: FDA-Public Use
  Company Number: US-SA-SAC20220715001004

PATIENT
  Sex: Female

DRUGS (1)
  1. DUPIXENT [Suspect]
     Active Substance: DUPILUMAB
     Indication: Dermatitis atopic
     Dosage: 300 MG, QOW,DOSE : 300 MG/2ML QOW
     Route: 058
     Dates: start: 20210205

REACTIONS (4)
  - Discomfort [Unknown]
  - Insomnia [Unknown]
  - Dermatitis atopic [Unknown]
  - Rash [Unknown]
